FAERS Safety Report 19755847 (Version 1)
Quarter: 2021Q3

REPORT INFORMATION
  Report Type: Spontaneous
  Country: US (occurrence: US)
  Receive Date: 20210827
  Receipt Date: 20210827
  Transmission Date: 20211014
  Serious: Yes (Other)
  Sender: FDA-Public Use
  Company Number: US-PFIZER INC-202101069913

PATIENT
  Age: 70 Year
  Sex: Male

DRUGS (2)
  1. XANAX [Suspect]
     Active Substance: ALPRAZOLAM
     Indication: PANIC DISORDER
     Dosage: 1 MG, 3X/DAY
  2. XANAX [Suspect]
     Active Substance: ALPRAZOLAM
     Dosage: UNK, AS NEEDED

REACTIONS (8)
  - Osteoarthritis [Unknown]
  - Chronic kidney disease [Unknown]
  - Therapeutic response unexpected [Unknown]
  - Blood pressure decreased [Unknown]
  - Cardiac disorder [Unknown]
  - Product supply issue [Unknown]
  - Hernia [Unknown]
  - Product dose omission issue [Unknown]
